FAERS Safety Report 8471368-4 (Version None)
Quarter: 2012Q2

REPORT INFORMATION
  Report Type: 
  Country: None (occurrence: None)
  Receive Date: 20120627
  Receipt Date: 20120625
  Transmission Date: 20120825
  Serious: Yes (Other)
  Sender: FDA-Public Use
  Company Number: DE-ROCHE-1080871

PATIENT
  Age: 64 Year
  Sex: Female

DRUGS (2)
  1. PEGASYS [Suspect]
     Indication: ESSENTIAL THROMBOCYTHAEMIA
     Dates: start: 20110601
  2. ASPIRIN [Concomitant]
     Indication: ESSENTIAL THROMBOCYTHAEMIA
     Dates: start: 20110601

REACTIONS (1)
  - BLOOD LACTATE DEHYDROGENASE INCREASED [None]
